FAERS Safety Report 10004132 (Version 1)
Quarter: 2014Q1

REPORT INFORMATION
  Report Type: Report from Study
  Country: US (occurrence: US)
  Receive Date: 20140312
  Receipt Date: 20140312
  Transmission Date: 20141002
  Serious: Yes (Other)
  Sender: FDA-Public Use
  Company Number: US-JNJFOC-20140300548

PATIENT
  Sex: Male

DRUGS (3)
  1. ZYTIGA [Suspect]
     Indication: PROSTATE CANCER
     Route: 048
  2. XTANDI [Suspect]
     Indication: PROSTATE CANCER
     Route: 065
  3. XTANDI [Suspect]
     Indication: PROSTATE CANCER
     Route: 065

REACTIONS (4)
  - Platelet count decreased [Unknown]
  - Pyrexia [Recovering/Resolving]
  - Prostatic specific antigen increased [Unknown]
  - Bone pain [Recovering/Resolving]
